FAERS Safety Report 7916968-2 (Version None)
Quarter: 2011Q4

REPORT INFORMATION
  Report Type: 
  Country: None (occurrence: None)
  Receive Date: 20111116
  Receipt Date: 20111116
  Transmission Date: 20120403
  Serious: Yes (Life-Threatening)
  Sender: FDA-Public Use
  Company Number: None

PATIENT
  Age: 28 Year
  Sex: Male
  Weight: 106.14 kg

DRUGS (3)
  1. CITALOPRAM [Concomitant]
  2. TRAMADOL HCL [Concomitant]
  3. ARMODAFINIL [Suspect]
     Indication: SOMNOLENCE
     Dosage: 250 MG
     Route: 048
     Dates: start: 20110912, end: 20110914

REACTIONS (3)
  - CARDIAC ARREST [None]
  - ELECTROCARDIOGRAM QT PROLONGED [None]
  - VENTRICULAR FIBRILLATION [None]
